FAERS Safety Report 4766231-6 (Version None)
Quarter: 2005Q3

REPORT INFORMATION
  Report Type: 
  Country: None (occurrence: None)
  Receive Date: 20050912
  Receipt Date: 20050902
  Transmission Date: 20060218
  Serious: Yes (Other)
  Sender: FDA-Public Use
  Company Number: PHEH2005US09871

PATIENT
  Sex: Female

DRUGS (4)
  1. STEROIDS NOS [Concomitant]
     Dosage: INTERMITTANT
  2. TAXOTERE [Concomitant]
  3. CHEMOTHERAPEUTICS,OTHER [Concomitant]
  4. ZOLEDRONATE [Suspect]
     Indication: METASTASES TO BONE
     Dosage: 4MG Q4WK
     Route: 042
     Dates: start: 20030915, end: 20050902

REACTIONS (4)
  - ASEPTIC NECROSIS BONE [None]
  - GINGIVAL SWELLING [None]
  - GINGIVITIS [None]
  - PAIN IN JAW [None]
